FAERS Safety Report 8949535 (Version 5)
Quarter: 2013Q3

REPORT INFORMATION
  Report Type: Report from Study
  Country: DE (occurrence: DE)
  Receive Date: 20121206
  Receipt Date: 20130725
  Transmission Date: 20140515
  Serious: Yes (Hospitalization, Other)
  Sender: FDA-Public Use
  Company Number: DE-ABBOTT-12P-062-1015321-00

PATIENT
  Age: 47 Year
  Sex: Female
  Weight: 90 kg

DRUGS (2)
  1. HUMIRA [Suspect]
     Indication: CROHN^S DISEASE
     Route: 058
     Dates: start: 2010
  2. DECORTIN [Concomitant]
     Indication: PRODUCT USED FOR UNKNOWN INDICATION
     Dosage: 10 MG DAILY
     Route: 048

REACTIONS (9)
  - Hepatic lesion [Not Recovered/Not Resolved]
  - Hepatic lesion [Unknown]
  - Post procedural haemorrhage [Unknown]
  - Inflammatory marker increased [Unknown]
  - Hepatic infection [Unknown]
  - Echinococciasis [Recovered/Resolved]
  - Haemangioma of liver [Unknown]
  - Gastritis [Not Recovered/Not Resolved]
  - Eczema [Not Recovered/Not Resolved]
